FAERS Safety Report 8388612-4 (Version None)
Quarter: 2012Q2

REPORT INFORMATION
  Report Type: 
  Country: None (occurrence: None)
  Receive Date: 20120525
  Receipt Date: 20120522
  Transmission Date: 20120825
  Serious: Yes (Hospitalization)
  Sender: FDA-Public Use
  Company Number: GB-MERCK-1101GBR00072

PATIENT
  Age: 61 Year
  Sex: Female

DRUGS (2)
  1. SINEMET [Suspect]
     Route: 065
  2. SINEMET [Suspect]
     Route: 065

REACTIONS (1)
  - HYPERSENSITIVITY [None]
